FAERS Safety Report 12540078 (Version 1)
Quarter: 2016Q3

REPORT INFORMATION
  Report Type: Spontaneous
  Country: US (occurrence: None)
  Receive Date: 20160707
  Receipt Date: 20160707
  Transmission Date: 20161109
  Serious: No
  Sender: FDA-Public Use
  Company Number: None

PATIENT
  Age: 51 Year
  Sex: Female
  Weight: 56.25 kg

DRUGS (1)
  1. SAVELLA [Suspect]
     Active Substance: MILNACIPRAN HYDROCHLORIDE
     Indication: FIBROMYALGIA
     Dosage: 1 TABLET(S) TWICE A DAY TAKEN BY MOUTH
     Route: 048

REACTIONS (4)
  - Fatigue [None]
  - Insomnia [None]
  - Heart rate increased [None]
  - Pain [None]

NARRATIVE: CASE EVENT DATE: 20160706
